FAERS Safety Report 16681567 (Version 1)
Quarter: 2019Q3

REPORT INFORMATION
  Report Type: Spontaneous
  Country: US (occurrence: US)
  Receive Date: 20190807
  Receipt Date: 20190807
  Transmission Date: 20191007
  Serious: No
  Sender: FDA-Public Use
  Company Number: None

PATIENT
  Age: 68 Year
  Sex: Female
  Weight: 77.4 kg

DRUGS (14)
  1. AMLODIPINE BESYLATE 5MG, 5 MG [Concomitant]
     Active Substance: AMLODIPINE BESYLATE
  2. BUSPIRONE 15MG, [Concomitant]
  3. LOSARTAN 100MG, [Concomitant]
  4. PRAVASTATIN 40MG, [Concomitant]
  5. DAMPHETAMINE 40MG, [Concomitant]
  6. TIZANIDINE 4MG [Concomitant]
     Active Substance: TIZANIDINE
  7. OXYCODONE/ACTAMINOPHEN 5/325MC [Concomitant]
  8. BUPROPION SR 200MG,, [Concomitant]
  9. DICLOFENAC SODIUM TOPICAL GEL 1% [Suspect]
     Active Substance: DICLOFENAC SODIUM
     Indication: ARTHRITIS
     Dosage: ?          QUANTITY:1 TUBE;?
     Route: 061
     Dates: start: 20190803, end: 20190803
  10. ASPRIN-DIPYRIDAMOLE ER 25/200MG [Concomitant]
  11. FLOUXETINE 40MG, [Concomitant]
  12. RAZODONE 40MG, [Concomitant]
  13. LEVOTHYROXINE 0.137, [Concomitant]
  14. RIVASTIGMINE 4.6 MG, [Concomitant]

REACTIONS (6)
  - Joint stiffness [None]
  - Application site swelling [None]
  - Skin disorder [None]
  - Muscle rigidity [None]
  - Gait disturbance [None]
  - Skin discolouration [None]

NARRATIVE: CASE EVENT DATE: 20190803
